FAERS Safety Report 7120978-5 (Version None)
Quarter: 2010Q4

REPORT INFORMATION
  Report Type: 
  Country: None (occurrence: None)
  Receive Date: 20101124
  Receipt Date: 20100120
  Transmission Date: 20110411
  Serious: No
  Sender: FDA-Public Use
  Company Number: US-PFIZER INC-2010008980

PATIENT
  Sex: Female
  Weight: 118 kg

DRUGS (12)
  1. TIKOSYN [Suspect]
     Indication: ATRIAL FIBRILLATION
     Dosage: 500 UG, 2X/DAY
     Dates: start: 20090201
  2. THYROID [Concomitant]
     Dosage: 125 UG, UNK
  3. LEVOFLOXACIN [Concomitant]
     Dosage: 500 MG, 1X/DAY
  4. VALSARTAN [Concomitant]
     Dosage: 160 MG, 1X/DAY
  5. ALDACTONE [Concomitant]
     Dosage: 10 MG, 3X/DAY
  6. DILTIAZEM [Concomitant]
     Dosage: 120 MG, 2X/DAY
  7. ACETYLSALICYLIC ACID [Concomitant]
     Dosage: 325 MG, UNK
  8. NIACIN [Concomitant]
     Dosage: 2000 MG, 1X/DAY
  9. ZOCOR [Concomitant]
     Dosage: 10 MG, 1X/DAY
  10. LASIX [Concomitant]
     Dosage: 20 MG, TWO TIMES A WEEK
  11. ALBUTEROL [Concomitant]
     Dosage: UNK
  12. TAMSULOSIN [Concomitant]
     Dosage: UNK

REACTIONS (1)
  - CATARACT [None]
